FAERS Safety Report 8849105 (Version 1)
Quarter: 2012Q4

REPORT INFORMATION
  Report Type: 
  Country: US (occurrence: US)
  Receive Date: 20121019
  Receipt Date: 20121019
  Transmission Date: 20130627
  Serious: Yes (Other)
  Sender: FDA-Public Use
  Company Number: US-BAYER-2012-107995

PATIENT
  Age: 23 Year
  Sex: Female

DRUGS (3)
  1. YAZ [Suspect]
     Dosage: UNK
     Dates: start: 200412
  2. YASMIN [Suspect]
     Dosage: UNK
     Dates: start: 200412
  3. OCELLA [Suspect]
     Dosage: UNK
     Dates: start: 200412

REACTIONS (1)
  - Cholecystitis acute [None]
